FAERS Safety Report 9674875 (Version 2)
Quarter: 2013Q4

REPORT INFORMATION
  Report Type: Report from Study
  Country: KR (occurrence: KR)
  Receive Date: 20131107
  Receipt Date: 20131107
  Transmission Date: 20140711
  Serious: Yes (Other)
  Sender: FDA-Public Use
  Company Number: PHHY2013KR079695

PATIENT
  Age: 70 Year
  Sex: Male
  Weight: 65 kg

DRUGS (1)
  1. INDACATEROL [Suspect]
     Dosage: 150 UG, UNK
     Dates: start: 20130414

REACTIONS (2)
  - Road traffic accident [Recovered/Resolved]
  - Laceration [Recovered/Resolved]
